FAERS Safety Report 8397566-6 (Version None)
Quarter: 2012Q2

REPORT INFORMATION
  Report Type: 
  Country: None (occurrence: None)
  Receive Date: 20120531
  Receipt Date: 20120522
  Transmission Date: 20120825
  Serious: Yes (Hospitalization)
  Sender: FDA-Public Use
  Company Number: US-BAYER-201027397NA

PATIENT
  Age: 51 Year
  Sex: Female
  Weight: 81.633 kg

DRUGS (7)
  1. POTASSIUM CHLORIDE [Concomitant]
     Indication: HYPOKALAEMIA
  2. NASONEX [Concomitant]
  3. YASMIN [Suspect]
     Indication: GENITAL HAEMORRHAGE
     Dosage: UNK
     Route: 048
     Dates: start: 20060501, end: 20080701
  4. YASMIN [Suspect]
     Indication: CONTRACEPTION
     Dosage: UNK UNK, UNK
     Route: 048
     Dates: start: 20050401, end: 20080701
  5. DROSPIRENONE AND ETHINYL ESTRADIOL [Suspect]
     Indication: CONTRACEPTION
     Dosage: UNK
     Route: 048
     Dates: start: 20080701
  6. ALLEGRA-D 12 HOUR [Concomitant]
  7. HYDROCHLOROTHIAZIDE [Concomitant]

REACTIONS (8)
  - DEEP VEIN THROMBOSIS [None]
  - LOSS OF CONSCIOUSNESS [None]
  - PAIN IN EXTREMITY [None]
  - MUSCLE SPASMS [None]
  - ANXIETY [None]
  - OEDEMA PERIPHERAL [None]
  - PULMONARY EMBOLISM [None]
  - INCREASED TENDENCY TO BRUISE [None]
